FAERS Safety Report 16014951 (Version 1)
Quarter: 2019Q1

REPORT INFORMATION
  Report Type: Spontaneous
  Country: US (occurrence: US)
  Receive Date: 20190227
  Receipt Date: 20190227
  Transmission Date: 20190418
  Serious: Yes (Hospitalization, Other)
  Sender: FDA-Public Use
  Company Number: US-ABBVIE-19K-163-2675797-00

PATIENT
  Age: 70 Year
  Sex: Female
  Weight: 61.29 kg

DRUGS (9)
  1. HUMIRA [Suspect]
     Active Substance: ADALIMUMAB
     Indication: CROHN^S DISEASE
     Route: 058
     Dates: start: 2016
  2. DOXYCYCLINE. [Suspect]
     Active Substance: DOXYCYCLINE
     Indication: PRODUCT USED FOR UNKNOWN INDICATION
     Route: 065
     Dates: start: 20190127, end: 201902
  3. MAGNESIUM [Concomitant]
     Active Substance: MAGNESIUM
     Indication: MINERAL SUPPLEMENTATION
  4. ZOLOFT [Concomitant]
     Active Substance: SERTRALINE HYDROCHLORIDE
     Indication: ANXIETY
  5. VITAMIN D [Concomitant]
     Active Substance: CHOLECALCIFEROL
     Indication: VITAMIN SUPPLEMENTATION
  6. SIMVASTATIN. [Concomitant]
     Active Substance: SIMVASTATIN
     Indication: BLOOD CHOLESTEROL INCREASED
  7. CEPHALEXIN. [Suspect]
     Active Substance: CEPHALEXIN
     Indication: PYODERMA GANGRENOSUM
     Route: 065
     Dates: start: 20190208, end: 20190210
  8. XANAX [Concomitant]
     Active Substance: ALPRAZOLAM
     Indication: SLEEP DISORDER THERAPY
  9. VITAMIN B12 [Concomitant]
     Active Substance: CYANOCOBALAMIN
     Indication: VITAMIN SUPPLEMENTATION

REACTIONS (14)
  - Arthralgia [Not Recovered/Not Resolved]
  - Bronchitis [Not Recovered/Not Resolved]
  - Pyoderma gangrenosum [Recovering/Resolving]
  - General physical health deterioration [Not Recovered/Not Resolved]
  - Injection site bruising [Not Recovered/Not Resolved]
  - Meniscus injury [Recovered/Resolved]
  - Stoma obstruction [Recovered/Resolved]
  - Hernia [Recovered/Resolved]
  - Skin exfoliation [Recovering/Resolving]
  - Stoma complication [Recovered/Resolved]
  - Suture rupture [Recovered/Resolved]
  - Skin ulcer [Recovering/Resolving]
  - Burning sensation [Recovering/Resolving]
  - Fungal skin infection [Recovered/Resolved]

NARRATIVE: CASE EVENT DATE: 2016
